FAERS Safety Report 10627237 (Version 1)
Quarter: 2014Q4

REPORT INFORMATION
  Report Type: Spontaneous
  Country: US (occurrence: US)
  Receive Date: 20141204
  Receipt Date: 20141204
  Transmission Date: 20150529
  Serious: Yes (Death, Other)
  Sender: FDA-Public Use
  Company Number: US-GLAXOSMITHKLINE-US2014GSK031007

PATIENT

DRUGS (1)
  1. AVANDIA [Suspect]
     Active Substance: ROSIGLITAZONE MALEATE
     Indication: DIABETES MELLITUS

REACTIONS (9)
  - Respiratory disorder [Fatal]
  - Cardio-respiratory arrest [Unknown]
  - Respiratory failure [Unknown]
  - Cardiac failure congestive [Unknown]
  - Pleural effusion [Unknown]
  - Pickwickian syndrome [Fatal]
  - Pulmonary oedema [Unknown]
  - Atrial fibrillation [Unknown]
  - Atrial flutter [Unknown]
